FAERS Safety Report 12832004 (Version 1)
Quarter: 2016Q4

REPORT INFORMATION
  Report Type: Spontaneous
  Country: US (occurrence: US)
  Receive Date: 20161010
  Receipt Date: 20161010
  Transmission Date: 20170207
  Serious: Yes (Hospitalization)
  Sender: FDA-Public Use
  Company Number: US-BAUSCH-BL-2016-024682

PATIENT
  Age: 16 Year
  Sex: Female

DRUGS (1)
  1. XENAZINE [Suspect]
     Active Substance: TETRABENAZINE
     Indication: CHOREA
     Dates: start: 20130430

REACTIONS (2)
  - Ileus [Unknown]
  - Pneumonia [Unknown]

NARRATIVE: CASE EVENT DATE: 20160919
